FAERS Safety Report 9952577 (Version 2)
Quarter: 2014Q1

REPORT INFORMATION
  Report Type: Report from Study
  Country: US (occurrence: US)
  Receive Date: 20140304
  Receipt Date: 20140307
  Transmission Date: 20141002
  Serious: Yes (Hospitalization, Other)
  Sender: FDA-Public Use
  Company Number: PHEH2014US004219

PATIENT
  Age: 85 Year
  Sex: Female

DRUGS (5)
  1. EXELON PATCH [Suspect]
     Indication: DEMENTIA ALZHEIMER^S TYPE
     Dosage: 4.6 MG, DAILY (PATCH 5 CM2)
     Route: 062
     Dates: start: 20120915
  2. DEPAKOTE [Suspect]
     Dosage: UNK UKN, UNK
  3. LEVOTHYROXINE [Suspect]
     Dosage: UNK UKN, UNK
  4. ATIVAN [Suspect]
     Dosage: UNK UKN, UNK
  5. DRUG THERAPY NOS [Suspect]
     Dosage: UNK UKN, UNK

REACTIONS (9)
  - Visual impairment [Unknown]
  - Loss of consciousness [Unknown]
  - Pulse absent [Unknown]
  - Hypotension [Unknown]
  - Dyskinesia [Unknown]
  - Tremor [Unknown]
  - Asthenia [Unknown]
  - Weight increased [Unknown]
  - Somnolence [Unknown]
